FAERS Safety Report 23108693 (Version 1)
Quarter: 2023Q4

REPORT INFORMATION
  Report Type: Spontaneous
  Country: US (occurrence: US)
  Receive Date: 20231026
  Receipt Date: 20231026
  Transmission Date: 20240110
  Serious: Yes (Other)
  Sender: FDA-Public Use
  Company Number: US-CELLTRION INC.-2023US020807

PATIENT

DRUGS (2)
  1. INFLECTRA [Suspect]
     Active Substance: INFLIXIMAB-DYYB
     Indication: Inflammatory bowel disease
     Dosage: 400 MILLIGRAM (10 ML EVERY HOUR, PER HOUR)
     Route: 042
     Dates: start: 20231002
  2. INFLECTRA [Suspect]
     Active Substance: INFLIXIMAB-DYYB
     Indication: Arthritis
     Dosage: 2.5 ML
     Route: 042
     Dates: start: 20231016

REACTIONS (2)
  - Back pain [Unknown]
  - Overdose [Unknown]

NARRATIVE: CASE EVENT DATE: 20231016
